FAERS Safety Report 7751064-9 (Version None)
Quarter: 2011Q3

REPORT INFORMATION
  Report Type: 
  Country: None (occurrence: None)
  Receive Date: 20110914
  Receipt Date: 20110523
  Transmission Date: 20111222
  Serious: No
  Sender: FDA-Public Use
  Company Number: US-MYLANLABS-2011S1010677

PATIENT
  Age: 54 Year
  Sex: Female

DRUGS (9)
  1. AMBIEN [Concomitant]
  2. OXYGEN [Concomitant]
  3. SPIRONOLACTONE [Suspect]
     Indication: POLYURIA
     Dates: start: 20110511
  4. NIASPAN [Concomitant]
  5. LEVOXYL [Concomitant]
  6. NEXIUM [Concomitant]
  7. PRISTIQ [Concomitant]
  8. VITAMIN TAB [Concomitant]
  9. TRICOR [Concomitant]

REACTIONS (4)
  - ABDOMINAL DISCOMFORT [None]
  - NAUSEA [None]
  - ABDOMINAL PAIN [None]
  - DIARRHOEA [None]
